FAERS Safety Report 9613864 (Version 2)
Quarter: 2015Q1

REPORT INFORMATION
  Report Type: Report from Study
  Country: US (occurrence: US)
  Receive Date: 20131010
  Receipt Date: 20150121
  Transmission Date: 20150721
  Serious: Yes (Death)
  Sender: FDA-Public Use
  Company Number: US-ROCHE-1286566

PATIENT
  Sex: Female
  Weight: 167.53 kg

DRUGS (68)
  1. AVASTIN [Suspect]
     Active Substance: BEVACIZUMAB
     Route: 042
     Dates: start: 20110323
  2. AVASTIN [Suspect]
     Active Substance: BEVACIZUMAB
     Route: 042
     Dates: start: 20101103
  3. AVASTIN [Suspect]
     Active Substance: BEVACIZUMAB
     Route: 042
     Dates: start: 20101201
  4. AVASTIN [Suspect]
     Active Substance: BEVACIZUMAB
     Route: 042
     Dates: start: 20101221
  5. AVASTIN [Suspect]
     Active Substance: BEVACIZUMAB
     Route: 042
     Dates: start: 20111119
  6. DIPHENHYDRAMINE [Concomitant]
     Active Substance: DIPHENHYDRAMINE
     Route: 042
     Dates: start: 20110323
  7. DIPHENHYDRAMINE [Concomitant]
     Active Substance: DIPHENHYDRAMINE
     Route: 042
     Dates: start: 20110601
  8. DIPHENHYDRAMINE [Concomitant]
     Active Substance: DIPHENHYDRAMINE
     Route: 042
     Dates: start: 20100203
  9. TEMSIROLIMUS [Concomitant]
     Active Substance: TEMSIROLIMUS
     Route: 042
     Dates: start: 20110112
  10. TEMSIROLIMUS [Concomitant]
     Active Substance: TEMSIROLIMUS
     Route: 042
     Dates: start: 20110601
  11. TEMSIROLIMUS [Concomitant]
     Active Substance: TEMSIROLIMUS
     Route: 042
     Dates: start: 20100908
  12. TEMSIROLIMUS [Concomitant]
     Active Substance: TEMSIROLIMUS
     Route: 042
     Dates: start: 20100929
  13. TEMSIROLIMUS [Concomitant]
     Active Substance: TEMSIROLIMUS
     Route: 042
     Dates: start: 20100519
  14. DIPHENHYDRAMINE [Concomitant]
     Active Substance: DIPHENHYDRAMINE
     Route: 042
     Dates: start: 20101201
  15. TEMSIROLIMUS [Concomitant]
     Active Substance: TEMSIROLIMUS
     Route: 042
     Dates: start: 20100630
  16. TEMSIROLIMUS [Concomitant]
     Active Substance: TEMSIROLIMUS
     Route: 042
     Dates: start: 20101201
  17. TEMSIROLIMUS [Concomitant]
     Active Substance: TEMSIROLIMUS
     Route: 042
     Dates: start: 20100609
  18. TEMSIROLIMUS [Concomitant]
     Active Substance: TEMSIROLIMUS
     Route: 042
     Dates: start: 20100818
  19. TEMSIROLIMUS [Concomitant]
     Active Substance: TEMSIROLIMUS
     Route: 042
     Dates: start: 20110928
  20. AVASTIN [Suspect]
     Active Substance: BEVACIZUMAB
     Route: 042
     Dates: start: 20110601
  21. AVASTIN [Suspect]
     Active Substance: BEVACIZUMAB
     Route: 042
     Dates: start: 20100908
  22. AVASTIN [Suspect]
     Active Substance: BEVACIZUMAB
     Route: 042
     Dates: start: 20100609
  23. AVASTIN [Suspect]
     Active Substance: BEVACIZUMAB
     Route: 042
     Dates: start: 20100224
  24. AVASTIN [Suspect]
     Active Substance: BEVACIZUMAB
     Route: 042
     Dates: start: 20100428
  25. METOCLOPRAMIDE. [Concomitant]
     Active Substance: METOCLOPRAMIDE
     Route: 042
     Dates: start: 20100728
  26. DIPHENHYDRAMINE [Concomitant]
     Active Substance: DIPHENHYDRAMINE
     Route: 042
     Dates: start: 20101221
  27. DIPHENHYDRAMINE [Concomitant]
     Active Substance: DIPHENHYDRAMINE
     Route: 042
     Dates: start: 20100908
  28. DIPHENHYDRAMINE [Concomitant]
     Active Substance: DIPHENHYDRAMINE
     Route: 042
     Dates: start: 20100428
  29. DIPHENHYDRAMINE [Concomitant]
     Active Substance: DIPHENHYDRAMINE
     Route: 042
     Dates: start: 20110928
  30. DIPHENHYDRAMINE [Concomitant]
     Active Substance: DIPHENHYDRAMINE
     Route: 042
     Dates: start: 20110718
  31. TEMSIROLIMUS [Concomitant]
     Active Substance: TEMSIROLIMUS
     Route: 042
     Dates: start: 20100407
  32. AVASTIN [Suspect]
     Active Substance: BEVACIZUMAB
     Route: 042
     Dates: start: 20100929
  33. DIPHENHYDRAMINE [Concomitant]
     Active Substance: DIPHENHYDRAMINE
     Route: 042
     Dates: start: 20100224
  34. DIPHENHYDRAMINE [Concomitant]
     Active Substance: DIPHENHYDRAMINE
     Route: 042
     Dates: start: 20110906
  35. TEMSIROLIMUS [Concomitant]
     Active Substance: TEMSIROLIMUS
     Route: 042
     Dates: start: 20110323
  36. TEMSIROLIMUS [Concomitant]
     Active Substance: TEMSIROLIMUS
     Route: 042
     Dates: start: 20101103
  37. TEMSIROLIMUS [Concomitant]
     Active Substance: TEMSIROLIMUS
     Route: 042
     Dates: start: 20111128
  38. TEMSIROLIMUS [Concomitant]
     Active Substance: TEMSIROLIMUS
     Route: 042
     Dates: start: 20110718
  39. AMLODIPINE [Concomitant]
     Active Substance: AMLODIPINE BESYLATE
     Route: 048
     Dates: start: 20100728
  40. AVASTIN [Suspect]
     Active Substance: BEVACIZUMAB
     Indication: CERVIX CARCINOMA
     Route: 042
     Dates: start: 20100203
  41. AVASTIN [Suspect]
     Active Substance: BEVACIZUMAB
     Route: 042
     Dates: start: 20100630
  42. AVASTIN [Suspect]
     Active Substance: BEVACIZUMAB
     Route: 042
     Dates: start: 20110112
  43. AVASTIN [Suspect]
     Active Substance: BEVACIZUMAB
     Route: 042
     Dates: start: 20100728
  44. AVASTIN [Suspect]
     Active Substance: BEVACIZUMAB
     Route: 042
     Dates: start: 20111128
  45. DIPHENHYDRAMINE [Concomitant]
     Active Substance: DIPHENHYDRAMINE
     Route: 042
     Dates: start: 20110112
  46. DIPHENHYDRAMINE [Concomitant]
     Active Substance: DIPHENHYDRAMINE
     Route: 042
     Dates: start: 20100630
  47. TEMSIROLIMUS [Concomitant]
     Active Substance: TEMSIROLIMUS
     Route: 042
     Dates: start: 20100224
  48. AVASTIN [Suspect]
     Active Substance: BEVACIZUMAB
     Route: 042
     Dates: start: 20100407
  49. AVASTIN [Suspect]
     Active Substance: BEVACIZUMAB
     Route: 042
     Dates: start: 20110906
  50. DIPHENHYDRAMINE [Concomitant]
     Active Substance: DIPHENHYDRAMINE
     Route: 042
     Dates: start: 20100519
  51. DIPHENHYDRAMINE [Concomitant]
     Active Substance: DIPHENHYDRAMINE
     Route: 042
     Dates: start: 20100407
  52. TEMSIROLIMUS [Concomitant]
     Active Substance: TEMSIROLIMUS
     Route: 042
     Dates: start: 20100428
  53. AVASTIN [Suspect]
     Active Substance: BEVACIZUMAB
     Route: 042
  54. AVASTIN [Suspect]
     Active Substance: BEVACIZUMAB
     Route: 042
     Dates: start: 20100519
  55. AVASTIN [Suspect]
     Active Substance: BEVACIZUMAB
     Route: 042
     Dates: start: 20110509
  56. AVASTIN [Suspect]
     Active Substance: BEVACIZUMAB
     Route: 042
     Dates: start: 20111219
  57. AVASTIN [Suspect]
     Active Substance: BEVACIZUMAB
     Route: 042
     Dates: start: 20110928
  58. DIPHENHYDRAMINE [Concomitant]
     Active Substance: DIPHENHYDRAMINE
     Route: 042
     Dates: start: 20100818
  59. DIPHENHYDRAMINE [Concomitant]
     Active Substance: DIPHENHYDRAMINE
     Route: 042
     Dates: start: 20111128
  60. DIPHENHYDRAMINE [Concomitant]
     Active Substance: DIPHENHYDRAMINE
     Route: 042
     Dates: start: 20111219
  61. DIPHENHYDRAMINE [Concomitant]
     Active Substance: DIPHENHYDRAMINE
     Route: 042
     Dates: start: 20111019
  62. TEMSIROLIMUS [Concomitant]
     Active Substance: TEMSIROLIMUS
     Route: 042
     Dates: start: 20110509
  63. DIPHENHYDRAMINE [Concomitant]
     Active Substance: DIPHENHYDRAMINE
     Route: 042
     Dates: start: 20110509
  64. DIPHENHYDRAMINE [Concomitant]
     Active Substance: DIPHENHYDRAMINE
     Route: 042
     Dates: start: 20100929
  65. TEMSIROLIMUS [Concomitant]
     Active Substance: TEMSIROLIMUS
     Route: 042
     Dates: start: 20101221
  66. TEMSIROLIMUS [Concomitant]
     Active Substance: TEMSIROLIMUS
     Route: 042
     Dates: start: 20100203
  67. TEMSIROLIMUS [Concomitant]
     Active Substance: TEMSIROLIMUS
     Route: 042
     Dates: start: 20111219
  68. TEMSIROLIMUS [Concomitant]
     Active Substance: TEMSIROLIMUS
     Route: 042
     Dates: start: 20111019

REACTIONS (3)
  - Dry skin [Unknown]
  - Contusion [Unknown]
  - Death [Fatal]
